FAERS Safety Report 17982893 (Version 1)
Quarter: 2020Q3

REPORT INFORMATION
  Report Type: Spontaneous
  Country: US (occurrence: US)
  Receive Date: 20200702
  Receipt Date: 20200702
  Transmission Date: 20201103
  Serious: No
  Sender: FDA-Public Use
  Company Number: None

PATIENT
  Age: 80 Year

DRUGS (1)
  1. KYMRIAH [Suspect]
     Active Substance: TISAGENLECLEUCEL

REACTIONS (13)
  - Respiratory arrest [None]
  - Respiratory distress [None]
  - Mouth breathing [None]
  - Livedo reticularis [None]
  - Urinary incontinence [None]
  - Heart rate decreased [None]
  - Pulse absent [None]
  - Infusion related reaction [None]
  - Taste disorder [None]
  - Dyspnoea [None]
  - Paraesthesia oral [None]
  - Blood pressure decreased [None]
  - Hyperhidrosis [None]
